FAERS Safety Report 9492110 (Version 2)
Quarter: 2013Q4

REPORT INFORMATION
  Report Type: Spontaneous
  Country: CA (occurrence: CA)
  Receive Date: 20130830
  Receipt Date: 20131112
  Transmission Date: 20140711
  Serious: Yes (Other)
  Sender: FDA-Public Use
  Company Number: CA-JNJFOC-20130809752

PATIENT
  Age: 23 Year
  Sex: Male
  Weight: 106.6 kg

DRUGS (5)
  1. TYLENOL EXTRA STRENGTH CAPLET [Suspect]
     Route: 048
  2. TYLENOL EXTRA STRENGTH CAPLET [Suspect]
     Indication: HEADACHE
     Route: 048
     Dates: start: 20130815, end: 20130815
  3. TEGRETOL [Concomitant]
     Indication: CONVULSION PROPHYLAXIS
     Dosage: 18 YEARS
     Route: 065
  4. NITRAZEPAM [Concomitant]
     Indication: CONVULSION PROPHYLAXIS
     Dosage: 6 YEARS
     Route: 065
  5. CLONAZEPAM [Concomitant]
     Indication: CONVULSION PROPHYLAXIS
     Route: 065

REACTIONS (2)
  - Convulsion [Not Recovered/Not Resolved]
  - Drug ineffective [Unknown]
